FAERS Safety Report 7365455-1 (Version None)
Quarter: 2011Q1

REPORT INFORMATION
  Report Type: 
  Country: None (occurrence: None)
  Receive Date: 20110302
  Receipt Date: 20110302
  Transmission Date: 20110831
  Serious: Yes (Hospitalization)
  Sender: FDA-Public Use
  Company Number: None

PATIENT
  Sex: Female
  Weight: 48.6 kg

DRUGS (4)
  1. BENDAMUSTINE [Suspect]
     Indication: SMALL CELL LUNG CANCER STAGE UNSPECIFIED
     Dosage: BENDAMUSTINE EVERY 3 WEEKS IV
     Route: 042
     Dates: start: 20110208
  2. IRINOTECAN 150MG PER METER SQUARE PFIZER [Suspect]
     Dosage: IRINOTECAN EVERY THREE WEEKS
     Route: 042
     Dates: start: 20110208
  3. IRINOTECAN 150MG PER METER SQUARE PFIZER [Suspect]
     Dosage: IRINOTECAN EVERY THREE WEEKS
     Route: 042
     Dates: start: 20110209
  4. IRINOTECAN 150MG PER METER SQUARE PFIZER [Suspect]
     Dosage: IRINOTECAN EVERY THREE WEEKS
     Route: 042
     Dates: start: 20110210

REACTIONS (10)
  - OXYGEN SATURATION DECREASED [None]
  - GASTRITIS [None]
  - HEPATIC LESION [None]
  - PLEURAL EFFUSION [None]
  - DYSPNOEA [None]
  - MEDIASTINAL DISORDER [None]
  - GASTRODUODENITIS [None]
  - RESPIRATORY RATE INCREASED [None]
  - HEART RATE INCREASED [None]
  - HIATUS HERNIA [None]
